FAERS Safety Report 20559479 (Version 1)
Quarter: 2022Q1

REPORT INFORMATION
  Report Type: Spontaneous
  Country: ES (occurrence: ES)
  Receive Date: 20220307
  Receipt Date: 20220307
  Transmission Date: 20220423
  Serious: Yes (Death, Other)
  Sender: FDA-Public Use
  Company Number: ES-VELOXIS PHARMACEUTICALS-2022VELES-000117

PATIENT
  Age: 16 Year
  Sex: Male

DRUGS (1)
  1. TACROLIMUS [Suspect]
     Active Substance: TACROLIMUS
     Indication: Liver transplant
     Dosage: UNK, UNKNOWN FREQ.
     Route: 065

REACTIONS (4)
  - Brain oedema [Fatal]
  - Epileptic encephalopathy [Fatal]
  - Peritonitis bacterial [Unknown]
  - Product use issue [Unknown]
